FAERS Safety Report 7418425-9 (Version None)
Quarter: 2011Q2

REPORT INFORMATION
  Report Type: 
  Country: None (occurrence: None)
  Receive Date: 20110415
  Receipt Date: 20110406
  Transmission Date: 20111010
  Serious: Yes (Other)
  Sender: FDA-Public Use
  Company Number: PHHY2011GR28643

PATIENT
  Age: 67 Year
  Sex: Female

DRUGS (3)
  1. METFORMIN HCL [Suspect]
     Indication: DIABETES MELLITUS
     Dosage: 850 MG, TID
  2. RAMIPRIL [Concomitant]
     Dosage: 5 MG, BID
  3. TERAZOSIN [Concomitant]
     Dosage: 2.5 MG, BID

REACTIONS (9)
  - PLATELET COUNT DECREASED [None]
  - INFECTION [None]
  - DIARRHOEA [None]
  - HYPOPHOSPHATAEMIA [None]
  - RECTAL TENESMUS [None]
  - ASTHENIA [None]
  - DECREASED APPETITE [None]
  - DRUG PRESCRIBING ERROR [None]
  - WHITE BLOOD CELL COUNT DECREASED [None]
